FAERS Safety Report 16374034 (Version 3)
Quarter: 2021Q2

REPORT INFORMATION
  Report Type: Spontaneous
  Country: CA (occurrence: CA)
  Receive Date: 20190530
  Receipt Date: 20210415
  Transmission Date: 20210716
  Serious: Yes (Life-Threatening, Other)
  Sender: FDA-Public Use
  Company Number: CA-MYLANLABS-2019M1049380

PATIENT
  Age: 2 Year
  Sex: Male
  Weight: 8.3 kg

DRUGS (1)
  1. EPIPEN JR [Suspect]
     Active Substance: EPINEPHRINE
     Indication: ANAPHYLACTIC REACTION
     Dosage: UNK
     Route: 030
     Dates: start: 20190516, end: 20190516

REACTIONS (5)
  - Off label use [Unknown]
  - Product complaint [Unknown]
  - Device use issue [Unknown]
  - Product use issue [Unknown]
  - Device failure [Recovered/Resolved]

NARRATIVE: CASE EVENT DATE: 20190516
